FAERS Safety Report 22867134 (Version 6)
Quarter: 2024Q3

REPORT INFORMATION
  Report Type: Report from Study
  Country: US (occurrence: US)
  Receive Date: 20230825
  Receipt Date: 20240910
  Transmission Date: 20241017
  Serious: Yes (Other)
  Sender: ROCHE
  Company Number: US-ROCHE-3410682

PATIENT
  Age: 50 Year
  Sex: Female

DRUGS (3)
  1. XOLAIR PFS [Suspect]
     Active Substance: OMALIZUMAB
     Indication: Neurodermatitis
     Route: 058
     Dates: start: 20230809, end: 202311
  2. XOLAIR PFS [Suspect]
     Active Substance: OMALIZUMAB
  3. DUPIXENT [Concomitant]
     Active Substance: DUPILUMAB

REACTIONS (4)
  - Anaphylactic reaction [Unknown]
  - Diabetes mellitus [Unknown]
  - Off label use [Unknown]
  - Blood cholesterol [Unknown]
